FAERS Safety Report 10672283 (Version 1)
Quarter: 2014Q4

REPORT INFORMATION
  Report Type: Spontaneous
  Country: US (occurrence: None)
  Receive Date: 20141222
  Receipt Date: 20141222
  Transmission Date: 20150529
  Serious: Yes (Life-Threatening)
  Sender: FDA-Public Use
  Company Number: None

PATIENT
  Age: 40 Year
  Sex: Female
  Weight: 97.98 kg

DRUGS (1)
  1. LEVOTHYROXINE [Suspect]
     Active Substance: LEVOTHYROXINE
     Indication: HYPOTHYROIDISM
     Dosage: TAKEN BY MOUTH
     Route: 048
     Dates: start: 20140814, end: 20141216

REACTIONS (15)
  - Dysarthria [None]
  - Crying [None]
  - Nervousness [None]
  - Pain [None]
  - Fatigue [None]
  - Chest pain [None]
  - Confusional state [None]
  - Gait disturbance [None]
  - Stress [None]
  - Panic attack [None]
  - Thinking abnormal [None]
  - Tremor [None]
  - Tachyphrenia [None]
  - Agitation [None]
  - Nausea [None]

NARRATIVE: CASE EVENT DATE: 20141210
